FAERS Safety Report 10994917 (Version 1)
Quarter: 2015Q2

REPORT INFORMATION
  Report Type: Spontaneous
  Country: JP (occurrence: JP)
  Receive Date: 20150407
  Receipt Date: 20150407
  Transmission Date: 20150821
  Serious: Yes (Disabling, Other)
  Sender: FDA-Public Use
  Company Number: JP-ELI_LILLY_AND_COMPANY-JP201301007937

PATIENT
  Age: 34 Year
  Sex: Female
  Weight: 50 kg

DRUGS (5)
  1. CYMBALTA [Suspect]
     Active Substance: DULOXETINE HYDROCHLORIDE
     Indication: DEPRESSION
     Dosage: 20 MG, QD
     Route: 048
     Dates: start: 20110526, end: 20110530
  2. WYPAX [Concomitant]
     Active Substance: LORAZEPAM
  3. HIRNAMIN                           /00038601/ [Suspect]
     Active Substance: LEVOMEPROMAZINE
     Indication: PRODUCT USED FOR UNKNOWN INDICATION
     Dosage: 5 MG, QD
     Route: 048
     Dates: start: 200908, end: 201202
  4. AMOBAN [Concomitant]
     Active Substance: ZOPICLONE
  5. BENZALIN                           /00036201/ [Concomitant]
     Active Substance: NITRAZEPAM

REACTIONS (3)
  - Serotonin syndrome [Unknown]
  - Tardive dyskinesia [Unknown]
  - Dystonia [Unknown]

NARRATIVE: CASE EVENT DATE: 20120526
